FAERS Safety Report 26168505 (Version 1)
Quarter: 2025Q4

REPORT INFORMATION
  Report Type: Spontaneous
  Country: CN (occurrence: CN)
  Receive Date: 20251217
  Receipt Date: 20251217
  Transmission Date: 20260117
  Serious: Yes (Death, Hospitalization, Other)
  Sender: STRIDES
  Company Number: None

PATIENT
  Age: 52 Year
  Sex: Female

DRUGS (12)
  1. METHOTREXATE [Suspect]
     Active Substance: METHOTREXATE
     Indication: Angiocentric lymphoma
     Dosage: PART OF MODIFIED SMILE REGIMEN
     Route: 065
     Dates: start: 2021
  2. METHOTREXATE [Suspect]
     Active Substance: METHOTREXATE
     Indication: Adrenal disorder
  3. ETOPOSIDE [Suspect]
     Active Substance: ETOPOSIDE
     Indication: Angiocentric lymphoma
     Dosage: PART OF MODIFIED SMILE REGIMEN
     Route: 065
     Dates: start: 2021
  4. ETOPOSIDE [Suspect]
     Active Substance: ETOPOSIDE
     Indication: Adrenal disorder
  5. DEXAMETHASONE [Suspect]
     Active Substance: DEXAMETHASONE
     Indication: Angiocentric lymphoma
     Dosage: PART OF MODIFIED SMILE REGIMEN
     Route: 065
     Dates: start: 2021
  6. DEXAMETHASONE [Suspect]
     Active Substance: DEXAMETHASONE
     Indication: Adrenal disorder
  7. CYCLOPHOSPHAMIDE [Suspect]
     Active Substance: CYCLOPHOSPHAMIDE
     Indication: Angiocentric lymphoma
     Dosage: PART OF MODIFIED SMILE REGIMEN
     Route: 065
     Dates: start: 2021
  8. CYCLOPHOSPHAMIDE [Suspect]
     Active Substance: CYCLOPHOSPHAMIDE
     Indication: Adrenal disorder
  9. PEMBROLIZUMAB [Suspect]
     Active Substance: PEMBROLIZUMAB
     Indication: Angiocentric lymphoma
     Dosage: PART OF MODIFIED SMILE REGIMEN
     Route: 065
     Dates: start: 2021
  10. PEMBROLIZUMAB [Suspect]
     Active Substance: PEMBROLIZUMAB
     Indication: Adrenal disorder
  11. DIPYRONE [Concomitant]
     Active Substance: DIPYRONE
     Indication: Pain management
     Dosage: UNK
     Route: 065
     Dates: start: 2021
  12. LEUCOVORIN CALCIUM [Concomitant]
     Active Substance: LEUCOVORIN CALCIUM
     Indication: Chemotherapy side effect prophylaxis
     Dosage: UNK
     Route: 065
     Dates: start: 2021

REACTIONS (5)
  - Multiple organ dysfunction syndrome [Fatal]
  - Septic shock [Fatal]
  - Gastrointestinal disorder [Unknown]
  - Myelosuppression [Unknown]
  - Infection [Unknown]

NARRATIVE: CASE EVENT DATE: 20210101
